FAERS Safety Report 11467514 (Version 11)
Quarter: 2020Q4

REPORT INFORMATION
  Report Type: Report from Study
  Country: CA (occurrence: CA)
  Receive Date: 20150908
  Receipt Date: 20201127
  Transmission Date: 20210113
  Serious: Yes (Other)
  Sender: FDA-Public Use
  Company Number: PHHY2014CA056476

PATIENT
  Age: 73 Year
  Sex: Female

DRUGS (6)
  1. SANDOSTATIN [Suspect]
     Active Substance: OCTREOTIDE ACETATE
  2. SANDOSTATIN LAR DEPOT [Suspect]
     Active Substance: OCTREOTIDE ACETATE
  3. SANDOSTATIN LAR DEPOT [Suspect]
     Active Substance: OCTREOTIDE ACETATE
     Indication: NEUROENDOCRINE TUMOUR
     Dosage: 30 MG, QMO (EVERY 4 WEEKS)
     Route: 030
     Dates: start: 20140505
  4. SANDOSTATIN LAR DEPOT [Suspect]
     Active Substance: OCTREOTIDE ACETATE
  5. SANDOSTATIN [Suspect]
     Active Substance: OCTREOTIDE ACETATE
     Indication: NEUROENDOCRINE TUMOUR
     Dosage: 150 UG (FOR 3 DAYS)
     Route: 058
     Dates: start: 20140502, end: 20140504
  6. SANDOSTATIN [Suspect]
     Active Substance: OCTREOTIDE ACETATE

REACTIONS (12)
  - Cough [Unknown]
  - Flatulence [Unknown]
  - Abdominal pain lower [Unknown]
  - Headache [Unknown]
  - Diarrhoea [Unknown]
  - Second primary malignancy [Unknown]
  - Lethargy [Unknown]
  - Blood pressure increased [Not Recovered/Not Resolved]
  - Nervousness [Unknown]
  - Malignant melanoma [Unknown]
  - Abdominal neoplasm [Recovering/Resolving]
  - Fatigue [Unknown]

NARRATIVE: CASE EVENT DATE: 2014
